FAERS Safety Report 20957533 (Version 6)
Quarter: 2023Q4

REPORT INFORMATION
  Report Type: Report from Study
  Country: US (occurrence: US)
  Receive Date: 20220614
  Receipt Date: 20231120
  Transmission Date: 20240110
  Serious: No
  Sender: FDA-Public Use
  Company Number: US-NOVARTISTESTPH-NVSC2022US136165

PATIENT
  Sex: Female

DRUGS (1)
  1. KESIMPTA [Suspect]
     Active Substance: OFATUMUMAB
     Indication: Multiple sclerosis
     Dosage: 20 MG, QMO
     Route: 058

REACTIONS (8)
  - Tooth injury [Unknown]
  - Poor quality sleep [Unknown]
  - Pyrexia [Recovered/Resolved]
  - Insomnia [Unknown]
  - Food aversion [Unknown]
  - Back pain [Unknown]
  - COVID-19 [Unknown]
  - Influenza like illness [Unknown]
